FAERS Safety Report 8087314-1 (Version None)
Quarter: 2012Q1

REPORT INFORMATION
  Report Type: 
  Country: None (occurrence: None)
  Receive Date: 20120128
  Receipt Date: 20110419
  Transmission Date: 20120608
  Serious: No
  Sender: FDA-Public Use
  Company Number: US-ABBOTT-11P-163-0720690-00

PATIENT
  Sex: Male
  Weight: 83.99 kg

DRUGS (4)
  1. HUMIRA [Suspect]
     Indication: CROHN'S DISEASE
     Dates: start: 20100801
  2. OMEPRAZOLE [Concomitant]
     Indication: DYSPEPSIA
  3. TRAMADOL HCL [Concomitant]
     Indication: PAIN
  4. ZOLOFT [Concomitant]
     Indication: DEPRESSION

REACTIONS (7)
  - INJECTION SITE SWELLING [None]
  - FLUSHING [None]
  - PRODUCT QUALITY ISSUE [None]
  - INJECTION SITE HAEMORRHAGE [None]
  - INJECTION SITE ERYTHEMA [None]
  - INJECTION SITE PAIN [None]
  - COLD SWEAT [None]
